FAERS Safety Report 5675306-9 (Version None)
Quarter: 2008Q2

REPORT INFORMATION
  Report Type: 
  Country: None (occurrence: None)
  Receive Date: 20080307
  Receipt Date: 20070917
  Transmission Date: 20081010
  Serious: Yes (Hospitalization, Other)
  Sender: FDA-Public Use
  Company Number: US200709003347

PATIENT
  Age: 70 Year
  Sex: Male

DRUGS (3)
  1. GEMZAR [Suspect]
     Indication: NON-SMALL CELL LUNG CANCER STAGE II
     Dates: start: 20060101, end: 20061201
  2. CARBOPLATIN [Concomitant]
  3. TAXOL [Concomitant]

REACTIONS (5)
  - DRUG TOXICITY [None]
  - INFECTION [None]
  - MALAISE [None]
  - PYREXIA [None]
  - WEIGHT DECREASED [None]
